FAERS Safety Report 6603026-2 (Version None)
Quarter: 2010Q1

REPORT INFORMATION
  Report Type: 
  Country: None (occurrence: None)
  Receive Date: 20100226
  Receipt Date: 20100222
  Transmission Date: 20100710
  Serious: Yes (Hospitalization)
  Sender: FDA-Public Use
  Company Number: US-BRISTOL-MYERS SQUIBB COMPANY-14986616

PATIENT
  Age: 74 Year
  Sex: Female
  Weight: 75 kg

DRUGS (8)
  1. AVALIDE [Suspect]
  2. METOPROLOL TARTRATE [Suspect]
  3. SIMVASTATIN [Concomitant]
  4. FUROSEMIDE [Concomitant]
  5. POTASSIUM [Concomitant]
  6. SULFAMETHOXAZOLE AND TRIMETHOPRIM [Concomitant]
     Dosage: 1 D.F:800MG/160MG
  7. WARFARIN SODIUM [Concomitant]
  8. NEXIUM [Concomitant]

REACTIONS (2)
  - ATRIAL FIBRILLATION [None]
  - DIABETES MELLITUS [None]
